FAERS Safety Report 11513221 (Version 1)
Quarter: 2015Q3

REPORT INFORMATION
  Report Type: Spontaneous
  Country: US (occurrence: US)
  Receive Date: 20150916
  Receipt Date: 20150916
  Transmission Date: 20151125
  Serious: No
  Sender: FDA-Public Use
  Company Number: US-PERRIGO-14US009707

PATIENT
  Age: 80 Year
  Sex: Female
  Weight: 60.32 kg

DRUGS (7)
  1. BAYER ASPIRIN [Concomitant]
     Active Substance: ASPIRIN
     Indication: ROUTINE HEALTH MAINTENANCE
     Dosage: UNK
     Route: 048
  2. ZETIA [Concomitant]
     Active Substance: EZETIMIBE
     Indication: BLOOD CHOLESTEROL INCREASED
     Dosage: UNK
     Route: 065
  3. IMIQUIMOD 5% 2H1 [Suspect]
     Active Substance: IMIQUIMOD
     Indication: SKIN CANCER
     Dosage: ONE SMALL APPLICATION, THREE TIMES WEEKLY
     Route: 061
     Dates: start: 20140907, end: 20140928
  4. METOPROLOL [Concomitant]
     Active Substance: METOPROLOL
     Indication: HYPERTENSION
     Dosage: UNK
     Route: 065
  5. ACYCLOVIR                          /00587301/ [Suspect]
     Active Substance: ACYCLOVIR
     Indication: HERPES ZOSTER
     Dosage: UNKNOWN, UNKNOWN
     Route: 048
     Dates: start: 20140924
  6. SYNTHROID [Concomitant]
     Active Substance: LEVOTHYROXINE SODIUM
     Indication: HYPOTHYROIDISM
     Dosage: UNK
     Route: 065
  7. SIMVASTATIN. [Concomitant]
     Active Substance: SIMVASTATIN
     Indication: BLOOD CHOLESTEROL INCREASED
     Dosage: UNK
     Route: 065

REACTIONS (6)
  - Inappropriate schedule of drug administration [Recovered/Resolved]
  - Fatigue [Unknown]
  - Application site scab [Recovering/Resolving]
  - Application site erythema [Recovering/Resolving]
  - Dizziness [Unknown]
  - Application site vesicles [Recovering/Resolving]

NARRATIVE: CASE EVENT DATE: 20140907
